FAERS Safety Report 24988708 (Version 1)
Quarter: 2025Q1

REPORT INFORMATION
  Report Type: Spontaneous
  Country: US (occurrence: US)
  Receive Date: 20250220
  Receipt Date: 20250220
  Transmission Date: 20250408
  Serious: No
  Sender: JOHNSON AND JOHNSON
  Company Number: US-JNJFOC-20250154548

PATIENT
  Age: 52 Year
  Sex: Female

DRUGS (1)
  1. HALDOL [Suspect]
     Active Substance: HALOPERIDOL
     Indication: Anxiety

REACTIONS (3)
  - Bradyphrenia [Unknown]
  - Confusional state [Unknown]
  - Drug intolerance [Unknown]
